FAERS Safety Report 11086288 (Version 1)
Quarter: 2015Q2

REPORT INFORMATION
  Report Type: Report from Study
  Country: NL (occurrence: NL)
  Receive Date: 20150503
  Receipt Date: 20150503
  Transmission Date: 20150821
  Serious: Yes (Hospitalization)
  Sender: FDA-Public Use
  Company Number: NL-AMGEN-NLDSL2015041520

PATIENT
  Age: 72 Year
  Sex: Female

DRUGS (1)
  1. NEULASTA [Suspect]
     Active Substance: PEGFILGRASTIM
     Indication: PROPHYLAXIS
     Dosage: 10 MG/ML, WWSP 0,6ML, EVERY 3 WEEKS
     Route: 058
     Dates: start: 20150204

REACTIONS (1)
  - Malaise [Unknown]
